FAERS Safety Report 12309641 (Version 2)
Quarter: 2016Q3

REPORT INFORMATION
  Report Type: Other
  Country: None (occurrence: GR)
  Receive Date: 20160427
  Receipt Date: 20160705
  Transmission Date: 20161109
  Serious: Yes (Hospitalization, Other)
  Sender: FDA-Public Use
  Company Number: GR-MERCK KGAA-1051064

PATIENT

DRUGS (1)
  1. NOVOTHYROX [Suspect]
     Active Substance: LEVOTHYROXINE SODIUM

REACTIONS (6)
  - Cytomegalovirus test positive [None]
  - Renal impairment [None]
  - Herpes simplex test positive [None]
  - Pericarditis [None]
  - Pleural effusion [None]
  - Epstein-Barr virus antibody positive [None]
